FAERS Safety Report 13594687 (Version 2)
Quarter: 2017Q2

REPORT INFORMATION
  Report Type: Spontaneous
  Country: US (occurrence: US)
  Receive Date: 20170530
  Receipt Date: 20170615
  Transmission Date: 20170830
  Serious: No
  Sender: FDA-Public Use
  Company Number: US-GLENMARK PHARMACEUTICALS-2017GMK027655

PATIENT

DRUGS (2)
  1. GABAPENTIN. [Suspect]
     Active Substance: GABAPENTIN
     Indication: PRODUCT USED FOR UNKNOWN INDICATION
     Dosage: 300 MG, TID
     Route: 065
  2. GABAPENTIN. [Suspect]
     Active Substance: GABAPENTIN
     Dosage: 100 MG, TID
     Route: 065

REACTIONS (6)
  - Tremor [Recovered/Resolved]
  - Affective disorder [Recovering/Resolving]
  - Myoclonus [Recovered/Resolved]
  - Asthenia [Unknown]
  - Cognitive disorder [Recovering/Resolving]
  - Confusional state [Unknown]
